FAERS Safety Report 13021951 (Version 2)
Quarter: 2016Q4

REPORT INFORMATION
  Report Type: Spontaneous
  Country: US (occurrence: US)
  Receive Date: 20161213
  Receipt Date: 20161228
  Transmission Date: 20170207
  Serious: No
  Sender: FDA-Public Use
  Company Number: US-ASTRAZENECA-2016SF29395

PATIENT

DRUGS (1)
  1. BYDUREON [Suspect]
     Active Substance: EXENATIDE
     Route: 065

REACTIONS (6)
  - Injection site mass [Unknown]
  - Injection site pain [Unknown]
  - Needle issue [Unknown]
  - Haemorrhage [Unknown]
  - Device issue [Unknown]
  - Pruritus [Unknown]
